FAERS Safety Report 8297348-X (Version None)
Quarter: 2012Q2

REPORT INFORMATION
  Report Type: 
  Country: None (occurrence: None)
  Receive Date: 20120419
  Receipt Date: 20120417
  Transmission Date: 20120825
  Serious: Yes (Hospitalization)
  Sender: FDA-Public Use
  Company Number: US-B.I. PHARMACEUTICALS,INC./RIDGEFIELD-2012-BP-07316BP

PATIENT
  Sex: Male

DRUGS (3)
  1. FUROSEMIDE [Concomitant]
     Indication: HYPERTENSION
  2. PRADAXA [Suspect]
     Dates: start: 20110401
  3. THYROID [Concomitant]
     Indication: HYPOTHYROIDISM

REACTIONS (2)
  - CARDIAC FAILURE CONGESTIVE [None]
  - RASH [None]
